FAERS Safety Report 16348765 (Version 1)
Quarter: 2019Q2

REPORT INFORMATION
  Report Type: Spontaneous
  Country: US (occurrence: US)
  Receive Date: 20190523
  Receipt Date: 20190523
  Transmission Date: 20190711
  Serious: Yes (Life-Threatening, Hospitalization)
  Sender: FDA-Public Use
  Company Number: US-TEVA-2019-US-1052732

PATIENT
  Age: 34 Year
  Sex: Female

DRUGS (1)
  1. NORTRIPTYLINE [Suspect]
     Active Substance: NORTRIPTYLINE
     Route: 065

REACTIONS (6)
  - Toxicity to various agents [Recovering/Resolving]
  - Seizure [Unknown]
  - Overdose [Recovering/Resolving]
  - Ventricular tachycardia [Recovered/Resolved]
  - Brugada syndrome [Recovered/Resolved]
  - Cardiac arrest [Recovered/Resolved]
